FAERS Safety Report 8271999-0 (Version None)
Quarter: 2012Q2

REPORT INFORMATION
  Report Type: 
  Country: None (occurrence: None)
  Receive Date: 20120410
  Receipt Date: 20120330
  Transmission Date: 20120825
  Serious: Yes (Hospitalization, Other)
  Sender: FDA-Public Use
  Company Number: US-CELGENEUS-163-21880-12021179

PATIENT
  Sex: Male

DRUGS (5)
  1. REVLIMID [Suspect]
     Dosage: 25 MILLIGRAM
     Route: 048
     Dates: start: 20100823
  2. REVLIMID [Suspect]
     Dosage: 10 MILLIGRAM
     Route: 048
     Dates: start: 20110610
  3. ACYCLOVIR [Concomitant]
     Route: 065
  4. COUMADIN [Concomitant]
     Route: 065
  5. ZOMETA [Concomitant]
     Route: 065

REACTIONS (4)
  - GASTROINTESTINAL HAEMORRHAGE [None]
  - FULL BLOOD COUNT DECREASED [None]
  - SINUSITIS [None]
  - GASTROINTESTINAL TRACT ADENOMA [None]
